FAERS Safety Report 6155211-4 (Version None)
Quarter: 2009Q2

REPORT INFORMATION
  Report Type: 
  Country: None (occurrence: None)
  Receive Date: 20090415
  Receipt Date: 20070312
  Transmission Date: 20091009
  Serious: No
  Sender: FDA-Public Use
  Company Number: US-ASTRAZENECA-2006UW10807

PATIENT
  Age: 10229 Day
  Sex: Female
  Weight: 88 kg

DRUGS (13)
  1. SEROQUEL [Suspect]
     Dosage: 100 MG - 400 MG
     Route: 048
     Dates: start: 19990623
  2. AMLODIPINE [Concomitant]
  3. METFORMIN HCL [Concomitant]
  4. ATENOLOL [Concomitant]
  5. LISINOPRIL [Concomitant]
  6. SIMVASTATIN [Concomitant]
  7. TOPIRAMATE [Concomitant]
  8. LITHIUM CARBONATE [Concomitant]
  9. CLOTRIMAZOLE [Concomitant]
  10. EZETIMIBE/ SIMVASTATIN [Concomitant]
  11. DIAZEPAM [Concomitant]
  12. NORGESTIMATE AND ETHINYL ESTRADIOL [Concomitant]
  13. ACETYLSALICYLIC ACID SRT [Concomitant]

REACTIONS (22)
  - BIPOLAR DISORDER [None]
  - BLOOD CHOLESTEROL INCREASED [None]
  - BLOOD GLUCOSE INCREASED [None]
  - BLOOD PRESSURE INCREASED [None]
  - CONTUSION [None]
  - DEPRESSION [None]
  - DYSLIPIDAEMIA [None]
  - EAR PAIN [None]
  - ECCHYMOSIS [None]
  - EUSTACHIAN TUBE DYSFUNCTION [None]
  - HAEMATOMA [None]
  - HYPERTENSION [None]
  - JOINT INJURY [None]
  - NASAL CONGESTION [None]
  - NECK INJURY [None]
  - OBESITY [None]
  - RASH [None]
  - SCHIZOPHRENIA [None]
  - SEBORRHOEIC DERMATITIS [None]
  - TINEA PEDIS [None]
  - TYPE 2 DIABETES MELLITUS [None]
  - VAGINAL HAEMORRHAGE [None]
